FAERS Safety Report 5019023-7 (Version None)
Quarter: 2006Q2

REPORT INFORMATION
  Report Type: 
  Country: None (occurrence: None)
  Receive Date: 20060606
  Receipt Date: 20060523
  Transmission Date: 20061013
  Serious: Yes (Other)
  Sender: FDA-Public Use
  Company Number: DE-GLAXOSMITHKLINE-D0049930A

PATIENT
  Age: 31 Year
  Sex: Female

DRUGS (3)
  1. ELMENDOS [Suspect]
     Indication: BIPOLAR II DISORDER
     Dosage: 50MG PER DAY
     Route: 048
     Dates: start: 20041110, end: 20041220
  2. FLUOXETINE [Concomitant]
     Dosage: 20MG PER DAY
     Route: 065
  3. PROMETHAZINE [Concomitant]
     Dosage: 25MG PER DAY
     Route: 065

REACTIONS (2)
  - CONJUNCTIVAL HAEMORRHAGE [None]
  - EPISTAXIS [None]
